FAERS Safety Report 17631941 (Version 2)
Quarter: 2020Q2

REPORT INFORMATION
  Report Type: Report from Study
  Country: None (occurrence: US)
  Receive Date: 20200406
  Receipt Date: 20200610
  Transmission Date: 20200713
  Serious: Yes (Other)
  Sender: FDA-Public Use
  Company Number: US-ABBVIE-20K-163-3351672-00

PATIENT
  Sex: Male

DRUGS (1)
  1. HUMIRA [Suspect]
     Active Substance: ADALIMUMAB
     Indication: CROHN^S DISEASE
     Route: 058

REACTIONS (8)
  - Nephrolithiasis [Recovering/Resolving]
  - Unevaluable event [Recovering/Resolving]
  - Impaired healing [Unknown]
  - Dyspepsia [Recovering/Resolving]
  - Fistula [Recovering/Resolving]
  - Muscle spasms [Unknown]
  - Skin laceration [Unknown]
  - Staphylococcal infection [Recovering/Resolving]

NARRATIVE: CASE EVENT DATE: 2020
